FAERS Safety Report 19610338 (Version 1)
Quarter: 2021Q3

REPORT INFORMATION
  Report Type: Spontaneous
  Country: KP (occurrence: KP)
  Receive Date: 20210726
  Receipt Date: 20210726
  Transmission Date: 20211014
  Serious: Yes (Other)
  Sender: FDA-Public Use
  Company Number: KP-EXELA PHARMA SCIENCES, LLC-2021EXL00025

PATIENT
  Age: 69 Year
  Sex: Male
  Weight: 64.4 kg

DRUGS (4)
  1. DOPAMINE [Suspect]
     Active Substance: DOPAMINE HYDROCHLORIDE
     Indication: HYPOTENSION
     Dosage: 5 ?G/KG/MIN
     Route: 042
  2. DOPAMINE [Suspect]
     Active Substance: DOPAMINE HYDROCHLORIDE
     Dosage: 10 ?G/KG/MIN
     Route: 042
  3. EPHEDRINE. [Suspect]
     Active Substance: EPHEDRINE
     Dosage: 8 MG
     Route: 065
  4. EPHEDRINE. [Suspect]
     Active Substance: EPHEDRINE
     Indication: HYPOTENSION
     Dosage: 4 MG
     Route: 065

REACTIONS (1)
  - Ventricular tachycardia [Recovered/Resolved]
